FAERS Safety Report 26157919 (Version 1)
Quarter: 2025Q4

REPORT INFORMATION
  Report Type: Spontaneous
  Country: US (occurrence: None)
  Receive Date: 20251212
  Receipt Date: 20251212
  Transmission Date: 20260117
  Serious: Yes (Hospitalization)
  Sender: FDA-CTU
  Company Number: None

PATIENT
  Sex: Female

DRUGS (3)
  1. AMBRISENTAN [Suspect]
     Active Substance: AMBRISENTAN
     Indication: Pulmonary arterial hypertension
     Dosage: FREQUENCY : DAILY;
     Route: 048
     Dates: start: 20191001
  2. REMODULIN [Suspect]
     Active Substance: TREPROSTINIL
  3. REMUNITY CART W/FILL AID [Concomitant]

REACTIONS (2)
  - Oedema [None]
  - Fluid retention [None]
